FAERS Safety Report 17056781 (Version 2)
Quarter: 2019Q4

REPORT INFORMATION
  Report Type: Spontaneous
  Country: US (occurrence: US)
  Receive Date: 20191121
  Receipt Date: 20191121
  Transmission Date: 20200122
  Serious: Yes (Other)
  Sender: FDA-Public Use
  Company Number: US-AUROBINDO-AUR-APL-2019-073450

PATIENT
  Age: 66 Year
  Sex: Female

DRUGS (2)
  1. NAFCILLIN [Suspect]
     Active Substance: NAFCILLIN SODIUM
     Indication: STAPHYLOCOCCAL INFECTION
     Dosage: 2 GRAM, EVERY HOUR (PLANNED FOR TOTAL 6 WEEKS)
     Route: 065
  2. NAFCILLIN [Suspect]
     Active Substance: NAFCILLIN SODIUM
     Indication: ENDOCARDITIS

REACTIONS (6)
  - Pyrexia [Unknown]
  - Neutropenia [Unknown]
  - Febrile neutropenia [Unknown]
  - Rash erythematous [Unknown]
  - Rash pruritic [Unknown]
  - White blood cell count decreased [Recovering/Resolving]
